FAERS Safety Report 7968415-2 (Version None)
Quarter: 2011Q4

REPORT INFORMATION
  Report Type: 
  Country: None (occurrence: None)
  Receive Date: 20111209
  Receipt Date: 20111201
  Transmission Date: 20120403
  Serious: Yes (Other)
  Sender: FDA-Public Use
  Company Number: FR-GENZYME-THYM-1002839

PATIENT
  Sex: Male
  Weight: 71 kg

DRUGS (16)
  1. POLARAMINE [Concomitant]
     Indication: MULTIPLE MYELOMA
     Dosage: 10 MG, QD
     Route: 042
     Dates: start: 20111010, end: 20111012
  2. CERNEVIT-12 [Concomitant]
     Indication: PRODUCT USED FOR UNKNOWN INDICATION
     Dosage: 5 ML, QD
     Dates: start: 20111006, end: 20111006
  3. MAGNESIUM SULFATE [Concomitant]
     Indication: PRODUCT USED FOR UNKNOWN INDICATION
     Dosage: 10 ML, QD
     Dates: start: 20111006, end: 20111006
  4. VALIUM [Concomitant]
     Indication: PRODUCT USED FOR UNKNOWN INDICATION
     Dosage: 10 MG, QD
     Route: 042
     Dates: start: 20111008, end: 20111010
  5. THYMOGLOBULIN [Suspect]
     Indication: MULTIPLE MYELOMA
     Dosage: 145.6 MG, QD
     Route: 042
     Dates: start: 20111011, end: 20111011
  6. TRACITRANS [Concomitant]
     Indication: PRODUCT USED FOR UNKNOWN INDICATION
     Dosage: 10 ML, QD
     Dates: start: 20111006, end: 20111006
  7. FLUDARA [Suspect]
     Dosage: 55.62 MG, QD
     Route: 065
     Dates: start: 20111011, end: 20111011
  8. DELURSAN [Concomitant]
     Indication: PRODUCT USED FOR UNKNOWN INDICATION
     Dosage: 500 MG, BID
     Route: 048
     Dates: start: 20111007, end: 20111007
  9. PANTOPRAZOLE [Concomitant]
     Indication: PRODUCT USED FOR UNKNOWN INDICATION
     Dosage: 20 MG, UNK
     Dates: start: 20111007, end: 20111007
  10. ALLOPURINOL [Concomitant]
     Indication: PRODUCT USED FOR UNKNOWN INDICATION
     Dosage: 300 MG, QD
     Dates: start: 20111007, end: 20111007
  11. THYMOGLOBULIN [Suspect]
     Dosage: 2 MG, QD
     Route: 042
  12. FLUDARA [Suspect]
     Indication: MULTIPLE MYELOMA
     Dosage: 55.62 MG, QD
     Route: 065
     Dates: start: 20111007, end: 20111009
  13. BUSULFAN [Concomitant]
     Indication: MULTIPLE MYELOMA
     Dosage: 58.24 MG, BID
     Route: 051
     Dates: start: 20111008, end: 20111009
  14. SOLU-MEDROL [Concomitant]
     Indication: MULTIPLE MYELOMA
     Dosage: 20 MG, QD
     Dates: start: 20111010, end: 20111013
  15. ZOFRAN [Concomitant]
     Indication: VOMITING
     Dosage: UNK
     Dates: start: 20111007, end: 20111012
  16. PROTON PUMP INHIBITORS [Concomitant]
     Indication: PRODUCT USED FOR UNKNOWN INDICATION
     Dosage: 40 MG, QD
     Dates: start: 20111012

REACTIONS (1)
  - CYTOLYTIC HEPATITIS [None]
